FAERS Safety Report 18620545 (Version 6)
Quarter: 2022Q1

REPORT INFORMATION
  Report Type: Report from Study
  Country: GB (occurrence: GB)
  Receive Date: 20201216
  Receipt Date: 20220304
  Transmission Date: 20220423
  Serious: Yes (Other)
  Sender: FDA-Public Use
  Company Number: GB-JNJFOC-20201226035

PATIENT
  Age: 47 Year
  Sex: Female

DRUGS (34)
  1. STELARA [Suspect]
     Active Substance: USTEKINUMAB
     Indication: Psoriasis
     Route: 058
     Dates: start: 20171008
  2. STELARA [Suspect]
     Active Substance: USTEKINUMAB
     Route: 058
     Dates: start: 20200626
  3. METRONIDAZOLE [Suspect]
     Active Substance: METRONIDAZOLE
     Indication: Product used for unknown indication
     Route: 065
  4. NAPROXEN [Concomitant]
     Active Substance: NAPROXEN
     Dosage: 56 TABLETS
     Dates: start: 20210205
  5. PREGABALIN [Concomitant]
     Active Substance: PREGABALIN
     Dosage: 56 CAPSULES
     Route: 065
     Dates: start: 20210125
  6. XAMIOL [BETAMETHASONE DIPROPIONATE;CALCIPOTRIOL MONOHYDRATE] [Concomitant]
     Indication: Psoriasis
     Dates: start: 20210111
  7. EXOREX [Concomitant]
     Active Substance: COAL TAR
     Indication: Pruritus
     Route: 065
     Dates: start: 20210111
  8. PREDNISOLONE [Concomitant]
     Active Substance: PREDNISOLONE
     Dosage: 42 TABLETS
     Dates: start: 20210111
  9. PROCHLORPERAZINE [Concomitant]
     Active Substance: PROCHLORPERAZINE
     Indication: Dizziness
     Dosage: 14 TABLETS
  10. ACETAMINOPHEN [Concomitant]
     Active Substance: ACETAMINOPHEN
     Dosage: 100 TABLETS
     Dates: start: 20210205
  11. OXYBUTYNIN [Concomitant]
     Active Substance: OXYBUTYNIN
     Dosage: 56 TABLETS
     Dates: start: 20210202
  12. PROMETHAZINE HYDROCHLORIDE [Concomitant]
     Active Substance: PROMETHAZINE HYDROCHLORIDE
     Dates: start: 20210202
  13. OMEPRAZOLE [Concomitant]
     Active Substance: OMEPRAZOLE
     Dosage: 28 CAPSULES
     Dates: start: 20210202
  14. FEXOFENADINE [Concomitant]
     Active Substance: FEXOFENADINE HYDROCHLORIDE
     Dates: start: 20210202
  15. FERROUS FUMARATE [Concomitant]
     Active Substance: FERROUS FUMARATE
     Dates: start: 20210202
  16. HYPROMELLOSES [Concomitant]
     Active Substance: HYPROMELLOSES
     Dates: start: 20210202
  17. HYDROXYZINE [Concomitant]
     Active Substance: HYDROXYZINE HYDROCHLORIDE
     Dates: start: 20210202
  18. CITALOPRAM [Concomitant]
     Active Substance: CITALOPRAM HYDROBROMIDE
     Dates: start: 20210202
  19. CARBOCYSTEINE [Concomitant]
     Active Substance: CARBOCYSTEINE
     Dosage: 168 CAPSULES
     Dates: start: 20210202
  20. CARBOCYSTEINE [Concomitant]
     Active Substance: CARBOCYSTEINE
  21. CHLORPHENIRAMINE [Concomitant]
     Active Substance: CHLORPHENIRAMINE
     Dosage: 56 TABLETS
     Dates: start: 20210202
  22. CHLORPHENIRAMINE [Concomitant]
     Active Substance: CHLORPHENIRAMINE
     Dosage: 56 TABLETS
  23. TOPIRAMATE [Concomitant]
     Active Substance: TOPIRAMATE
     Dosage: 60 TABLETS
     Dates: start: 20210202
  24. CALCIPOTRIENE [Concomitant]
     Active Substance: CALCIPOTRIENE
     Dates: start: 20210202
  25. FLUTICASONE FUROATE [Concomitant]
     Active Substance: FLUTICASONE FUROATE
     Route: 045
     Dates: start: 20210202
  26. SUNSENSE AFTERSUN [Concomitant]
     Dates: start: 20210202
  27. TRELEGY ELLIPTA [Concomitant]
     Active Substance: FLUTICASONE FUROATE\UMECLIDINIUM BROMIDE\VILANTEROL TRIFENATATE
     Dates: start: 20210202
  28. AZITHROMYCIN [Concomitant]
     Active Substance: AZITHROMYCIN
     Dosage: 12 TABLETS
     Dates: start: 20210202
  29. ALBUTEROL [Concomitant]
     Active Substance: ALBUTEROL
     Dosage: 200 DOSE
     Dates: start: 20210202
  30. FENTANYL [Concomitant]
     Active Substance: FENTANYL
     Dosage: 12 MICRONES
     Dates: start: 20210202
  31. CHOLECALCIFEROL [Concomitant]
     Active Substance: CHOLECALCIFEROL
     Dosage: 200 CAPSULES
     Dates: start: 20201022
  32. COLOFAC [MEBEVERINE HYDROCHLORIDE] [Concomitant]
     Indication: Abdominal distension
     Dosage: 84 TABLETS
     Dates: start: 20191220
  33. ISOPROPYL MYRISTATE\MINERAL OIL [Concomitant]
     Active Substance: ISOPROPYL MYRISTATE\MINERAL OIL
  34. OCTINOXATE [Concomitant]
     Active Substance: OCTINOXATE
     Dates: start: 20210202

REACTIONS (17)
  - Anaphylactic reaction [Unknown]
  - Lower respiratory tract infection [Unknown]
  - Hypersensitivity [Unknown]
  - Bronchiectasis [Unknown]
  - Hyperthyroidism [Unknown]
  - Diverticulitis [Unknown]
  - Suspected COVID-19 [Unknown]
  - Uterine leiomyoma [Unknown]
  - Diverticulum intestinal [Unknown]
  - Rotator cuff syndrome [Unknown]
  - Tendonitis [Unknown]
  - Bursitis [Unknown]
  - Polyp [Recovered/Resolved]
  - Migraine [Unknown]
  - Tinnitus [Unknown]
  - Presbyacusis [Unknown]
  - Psoriasis [Unknown]

NARRATIVE: CASE EVENT DATE: 20171113
